FAERS Safety Report 19808632 (Version 2)
Quarter: 2021Q3

REPORT INFORMATION
  Report Type: Report from Study
  Country: ES (occurrence: ES)
  Receive Date: 20210909
  Receipt Date: 20210923
  Transmission Date: 20211014
  Serious: Yes (Hospitalization, Other)
  Sender: FDA-Public Use
  Company Number: NVSC2021ES202066

PATIENT
  Age: 79 Year
  Sex: Female

DRUGS (8)
  1. ACETYLSALICYLIC ACID [Concomitant]
     Active Substance: ASPIRIN
     Indication: PERIPHERAL ISCHAEMIA
     Dosage: 100 MG, QD
     Route: 048
     Dates: start: 20190207
  2. METOCLOPRAMIDE. [Concomitant]
     Active Substance: METOCLOPRAMIDE
     Indication: PROPHYLAXIS OF NAUSEA AND VOMITING
     Dosage: 10 MG, Q3W
     Route: 048
     Dates: start: 20210712
  3. ALPELISIB [Suspect]
     Active Substance: ALPELISIB
     Indication: BREAST CANCER
     Dosage: 250 MG
     Route: 048
     Dates: start: 20210825, end: 20210902
  4. CINITAPRIDE. [Concomitant]
     Active Substance: CINITAPRIDE
     Indication: REFLUX GASTRITIS
     Dosage: 1 MG, Q3W
     Route: 048
  5. LOPERAMIDE [Concomitant]
     Active Substance: LOPERAMIDE
     Indication: PROPHYLAXIS AGAINST DIARRHOEA
     Dosage: 4 MG
     Route: 048
     Dates: start: 20210712
  6. FULVESTRANT. [Suspect]
     Active Substance: FULVESTRANT
     Indication: BREAST CANCER
     Dosage: 500 MG
     Route: 030
     Dates: start: 20210825, end: 20210825
  7. METFORMIN [Suspect]
     Active Substance: METFORMIN HYDROCHLORIDE
     Indication: BREAST CANCER
     Dosage: 500 MG
     Route: 048
     Dates: start: 20210825, end: 20210902
  8. OLMESARTANA + HIDROCLOROTIAZIDA [Concomitant]
     Active Substance: HYDROCHLOROTHIAZIDE\OLMESARTAN MEDOXOMIL
     Indication: HYPERTENSION
     Dosage: 20/12.5MG QD
     Route: 048
     Dates: start: 20210709

REACTIONS (4)
  - Decreased appetite [Recovered/Resolved]
  - Diarrhoea [Recovered/Resolved]
  - Mucosal inflammation [Recovered/Resolved]
  - Asthenia [Recovered/Resolved]

NARRATIVE: CASE EVENT DATE: 20210831
